FAERS Safety Report 8298048-2 (Version None)
Quarter: 2012Q2

REPORT INFORMATION
  Report Type: 
  Country: None (occurrence: None)
  Receive Date: 20120419
  Receipt Date: 20101227
  Transmission Date: 20120825
  Serious: Yes (Hospitalization, Other)
  Sender: FDA-Public Use
  Company Number: US-BAYER-201013040NA

PATIENT
  Age: 33 Year
  Sex: Female
  Weight: 116 kg

DRUGS (2)
  1. YASMIN [Suspect]
     Indication: PRODUCT USED FOR UNKNOWN INDICATION
     Route: 048
     Dates: start: 20070701, end: 20080201
  2. YAZ [Suspect]
     Indication: PRODUCT USED FOR UNKNOWN INDICATION
     Route: 048
     Dates: start: 20070701, end: 20080201

REACTIONS (6)
  - CHEST PAIN [None]
  - ANGINA PECTORIS [None]
  - DYSPNOEA [None]
  - ACUTE MYOCARDIAL INFARCTION [None]
  - CHEST DISCOMFORT [None]
  - PALPITATIONS [None]
